FAERS Safety Report 11960431 (Version 1)
Quarter: 2016Q1

REPORT INFORMATION
  Report Type: Report from Study
  Country: US (occurrence: US)
  Receive Date: 20160126
  Receipt Date: 20160126
  Transmission Date: 20160526
  Serious: No
  Sender: FDA-Public Use
  Company Number: US-ABBVIE-15K-163-1373690-00

PATIENT
  Age: 55 Year
  Sex: Female

DRUGS (1)
  1. HUMIRA [Suspect]
     Active Substance: ADALIMUMAB
     Indication: RHEUMATOID ARTHRITIS
     Route: 065
     Dates: end: 20150403

REACTIONS (5)
  - Feeling hot [Unknown]
  - Erythema [Unknown]
  - Nodule [Unknown]
  - Local swelling [Unknown]
  - Viral infection [Unknown]

NARRATIVE: CASE EVENT DATE: 20150402
